FAERS Safety Report 20053163 (Version 1)
Quarter: 2021Q4

REPORT INFORMATION
  Report Type: Spontaneous
  Country: US (occurrence: None)
  Receive Date: 20211109
  Receipt Date: 20211109
  Transmission Date: 20220303
  Serious: No
  Sender: FDA-Public Use
  Company Number: None

PATIENT

DRUGS (2)
  1. MORPHINE SULFATE [Suspect]
     Active Substance: MORPHINE SULFATE
  2. MORPHINE [Suspect]
     Active Substance: MORPHINE

REACTIONS (4)
  - Device use confusion [None]
  - Incorrect route of product administration [None]
  - Wrong device used [None]
  - Product packaging confusion [None]
